FAERS Safety Report 15155468 (Version 1)
Quarter: 2018Q3

REPORT INFORMATION
  Report Type: Spontaneous
  Country: None (occurrence: US)
  Receive Date: 20180717
  Receipt Date: 20180717
  Transmission Date: 20181010
  Serious: No
  Sender: FDA-Public Use
  Company Number: US-XTTRIUM LABORATORIES, INC-2052261

PATIENT
  Sex: Female

DRUGS (1)
  1. CHLORHEXIDINE GLUCONATE. [Suspect]
     Active Substance: CHLORHEXIDINE GLUCONATE
     Indication: ENDODONTIC PROCEDURE
     Route: 048
     Dates: start: 20180611, end: 20180620

REACTIONS (1)
  - Trichoglossia [Unknown]

NARRATIVE: CASE EVENT DATE: 20180611
